FAERS Safety Report 22246372 (Version 1)
Quarter: 2023Q2

REPORT INFORMATION
  Report Type: Spontaneous
  Country: US (occurrence: None)
  Receive Date: 20230422
  Receipt Date: 20230422
  Transmission Date: 20230722
  Serious: No
  Sender: FDA-Public Use
  Company Number: None

PATIENT
  Age: 29 Year
  Sex: Female
  Weight: 74.84 kg

DRUGS (15)
  1. PARAGARD T 380A [Suspect]
     Active Substance: COPPER
  2. EMGALITY [Concomitant]
     Active Substance: GALCANEZUMAB-GNLM
  3. TOPAMAX [Concomitant]
     Active Substance: TOPIRAMATE
  4. MONTELUKAST [Concomitant]
     Active Substance: MONTELUKAST SODIUM
  5. ONDANSETRON [Concomitant]
     Active Substance: ONDANSETRON
  6. SYMBICORT [Concomitant]
     Active Substance: BUDESONIDE\FORMOTEROL FUMARATE DIHYDRATE
  7. ALBUTEROL [Concomitant]
     Active Substance: ALBUTEROL
  8. PROMETHAZINE [Concomitant]
     Active Substance: PROMETHAZINE HYDROCHLORIDE
  9. DILTIAZEM [Concomitant]
     Active Substance: DILTIAZEM
  10. CLARITIN [Concomitant]
     Active Substance: LORATADINE
  11. BENADRYL [Concomitant]
     Active Substance: DIPHENHYDRAMINE HYDROCHLORIDE
  12. VITAMINS [Concomitant]
     Active Substance: VITAMINS
  13. VITAMIN B12 [Concomitant]
     Active Substance: CYANOCOBALAMIN
  14. b2 [Concomitant]
  15. VITAMIN D [Concomitant]
     Active Substance: VITAMIN D NOS

REACTIONS (5)
  - Menstruation irregular [None]
  - Heavy menstrual bleeding [None]
  - Muscle spasms [None]
  - Back pain [None]
  - Intermenstrual bleeding [None]

NARRATIVE: CASE EVENT DATE: 20200831
